FAERS Safety Report 10698684 (Version 4)
Quarter: 2015Q3

REPORT INFORMATION
  Report Type: Spontaneous
  Country: US (occurrence: US)
  Receive Date: 20150108
  Receipt Date: 20150806
  Transmission Date: 20151125
  Serious: Yes (Hospitalization)
  Sender: FDA-Public Use
  Company Number: US-BAYER-2015-002600

PATIENT
  Age: 22 Year
  Sex: Female

DRUGS (1)
  1. MIRENA [Suspect]
     Active Substance: LEVONORGESTREL
     Indication: CONTRACEPTION
     Dosage: 20 MCG/24HR, CONT
     Route: 015
     Dates: start: 20050509, end: 201001

REACTIONS (13)
  - Pregnancy with contraceptive device [None]
  - Pain [None]
  - Drug ineffective [None]
  - Device issue [None]
  - Injury [None]
  - Emotional distress [None]
  - Scar [None]
  - Procedural pain [None]
  - Embedded device [None]
  - Benign ovarian tumour [None]
  - Depression [None]
  - Device issue [None]
  - Abdominal pain [None]

NARRATIVE: CASE EVENT DATE: 200610
